FAERS Safety Report 10020957 (Version 2)
Quarter: 2014Q2

REPORT INFORMATION
  Report Type: Spontaneous
  Country: US (occurrence: US)
  Receive Date: 20140319
  Receipt Date: 20140429
  Transmission Date: 20141212
  Serious: Yes (Hospitalization)
  Sender: FDA-Public Use
  Company Number: US-JNJFOC-20140307720

PATIENT
  Age: 53 Year
  Sex: Male

DRUGS (4)
  1. XARELTO [Suspect]
     Indication: THROMBOSIS PROPHYLAXIS
     Route: 048
     Dates: start: 20131113, end: 20131120
  2. XARELTO [Suspect]
     Indication: KNEE ARTHROPLASTY
     Route: 048
     Dates: start: 20131113, end: 20131120
  3. NORCO [Concomitant]
     Indication: PAIN
     Dosage: 10/325 MG, 1-2 TABLETS EVERY 4-6 HOURS AS PER NEEDED
     Route: 065
     Dates: start: 20131116
  4. VALIUM [Concomitant]
     Indication: MUSCLE SPASMS
     Dosage: 1 TABLET EVERY 8 HOURS AS NEEDED
     Route: 065

REACTIONS (2)
  - Ischaemic stroke [Recovering/Resolving]
  - Tachycardia [Unknown]
